FAERS Safety Report 19495215 (Version 1)
Quarter: 2021Q3

REPORT INFORMATION
  Report Type: Spontaneous
  Country: DE (occurrence: DE)
  Receive Date: 20210705
  Receipt Date: 20210705
  Transmission Date: 20211014
  Serious: Yes (Life-Threatening, Hospitalization, Other)
  Sender: FDA-Public Use
  Company Number: DE-AUROBINDO-AUR-APL-2021-028251

PATIENT
  Age: 81 Year
  Sex: Male
  Weight: 114 kg

DRUGS (5)
  1. JARDIANCE [Suspect]
     Active Substance: EMPAGLIFLOZIN
     Indication: TYPE 2 DIABETES MELLITUS
     Dosage: 10 MILLIGRAM, ONCE A DAY (1?0?0)
     Route: 065
     Dates: start: 20210216
  2. XIPAMID [Suspect]
     Active Substance: XIPAMIDE
     Indication: CARDIAC FAILURE
     Dosage: 10 MILLIGRAM (2 IN 1 WEEK)
     Route: 065
     Dates: start: 20210216
  3. LIXIANA [Concomitant]
     Active Substance: EDOXABAN TOSYLATE
     Indication: ATRIAL FIBRILLATION
     Dosage: 60 MILLIGRAM, ONCE A DAY (1?0?0)
     Route: 065
     Dates: start: 20210216
  4. METFORMIN [Suspect]
     Active Substance: METFORMIN HYDROCHLORIDE
     Indication: TYPE 2 DIABETES MELLITUS
     Dosage: 500 MILLIGRAM (0.5 PER DAY,1?0?1)
     Route: 065
     Dates: start: 20210216
  5. TORASEMIDE [Suspect]
     Active Substance: TORSEMIDE
     Indication: CARDIAC FAILURE
     Dosage: 20 MILLIGRAM, ONCE A DAY (1?0?0)
     Route: 065
     Dates: start: 20210216

REACTIONS (3)
  - Hypokalaemia [Recovered/Resolved]
  - Dehydration [Recovered/Resolved]
  - Oedema peripheral [Unknown]

NARRATIVE: CASE EVENT DATE: 20210419
